FAERS Safety Report 19603617 (Version 3)
Quarter: 2021Q3

REPORT INFORMATION
  Report Type: Report from Study
  Country: US (occurrence: US)
  Receive Date: 20210723
  Receipt Date: 20210812
  Transmission Date: 20211014
  Serious: Yes (Hospitalization, Other)
  Sender: FDA-Public Use
  Company Number: US-BRISTOL-MYERS SQUIBB COMPANY-BMS-2021-069598

PATIENT

DRUGS (3)
  1. RILIMOGENE GLAFOLIVEC [Suspect]
     Active Substance: RILIMOGENE GLAFOLIVEC
     Indication: PROSTATE CANCER
     Route: 065
  2. NIVOLUMAB [Suspect]
     Active Substance: NIVOLUMAB
     Indication: PROSTATE CANCER
     Route: 065
  3. PROSTVAC [Suspect]
     Active Substance: RILIMOGENE GALVACIREPVEC
     Indication: PROSTATE CANCER
     Route: 065

REACTIONS (6)
  - Vomiting [Unknown]
  - Diarrhoea [Unknown]
  - Duodenal obstruction [Unknown]
  - Non-cardiac chest pain [Unknown]
  - Small intestinal obstruction [Unknown]
  - Vestibular disorder [Unknown]

NARRATIVE: CASE EVENT DATE: 20210713
